FAERS Safety Report 9242200 (Version 1)
Quarter: 2013Q2

REPORT INFORMATION
  Report Type: Spontaneous
  Country: US (occurrence: US)
  Receive Date: 20130419
  Receipt Date: 20130419
  Transmission Date: 20140414
  Serious: Yes (Other)
  Sender: FDA-Public Use
  Company Number: US-BAYER-2013-049241

PATIENT
  Age: 82 Year
  Sex: Female

DRUGS (1)
  1. CIPROFLOXACIN [Suspect]
     Indication: URINARY TRACT INFECTION BACTERIAL
     Dosage: UNK

REACTIONS (3)
  - Escherichia urinary tract infection [Recovered/Resolved]
  - Bacteriuria [Recovered/Resolved]
  - Drug resistance [None]
